FAERS Safety Report 20637065 (Version 1)
Quarter: 2022Q1

REPORT INFORMATION
  Report Type: Spontaneous
  Country: US (occurrence: None)
  Receive Date: 20220325
  Receipt Date: 20220325
  Transmission Date: 20220423
  Serious: Yes (Hospitalization)
  Sender: FDA-Public Use
  Company Number: None

PATIENT
  Age: 46 Year
  Sex: Male
  Weight: 91.35 kg

DRUGS (2)
  1. OPDIVO [Suspect]
     Active Substance: NIVOLUMAB
     Indication: Metastatic malignant melanoma
     Dates: start: 20211012, end: 20220114
  2. YERVOY [Suspect]
     Active Substance: IPILIMUMAB

REACTIONS (3)
  - Enteritis [None]
  - Pancreatitis [None]
  - Toxicity to various agents [None]

NARRATIVE: CASE EVENT DATE: 20220114
